FAERS Safety Report 7457323-1 (Version None)
Quarter: 2011Q2

REPORT INFORMATION
  Report Type: 
  Country: None (occurrence: None)
  Receive Date: 20110504
  Receipt Date: 20101005
  Transmission Date: 20111010
  Serious: No
  Sender: FDA-Public Use
  Company Number: US-KINGPHARMUSA00001-K201001241

PATIENT
  Age: 55 Year
  Sex: Female
  Weight: 72.562 kg

DRUGS (4)
  1. THYROID TAB [Concomitant]
     Indication: THYROID DISORDER
     Dosage: UNK
     Route: 048
  2. AVINZA [Suspect]
     Indication: MYALGIA
     Dosage: 90 MG TOOK HALF THE BEADS FROM CAPSULE, QD
     Route: 048
     Dates: start: 20100925, end: 20100926
  3. AVINZA [Suspect]
     Dosage: 90 MG TOOK HALF THE BEADS FROM CAPSULE, QD
     Route: 048
     Dates: start: 20101004, end: 20101004
  4. LOPRESSOR [Concomitant]
     Indication: HEART RATE IRREGULAR
     Dosage: UNK
     Route: 048

REACTIONS (4)
  - WRONG TECHNIQUE IN DRUG USAGE PROCESS [None]
  - DRY MOUTH [None]
  - INSOMNIA [None]
  - TINNITUS [None]
